FAERS Safety Report 7102638-X (Version None)
Quarter: 2010Q4

REPORT INFORMATION
  Report Type: 
  Country: None (occurrence: None)
  Receive Date: 20101115
  Receipt Date: 20101109
  Transmission Date: 20110411
  Serious: Yes (Other)
  Sender: FDA-Public Use
  Company Number: B0684398A

PATIENT

DRUGS (1)
  1. VOXRA [Suspect]
     Indication: PRODUCT USED FOR UNKNOWN INDICATION
     Route: 065
     Dates: start: 20100101

REACTIONS (3)
  - BLEEDING TIME PROLONGED [None]
  - ECCHYMOSIS [None]
  - INCREASED TENDENCY TO BRUISE [None]
